FAERS Safety Report 5280911-8 (Version None)
Quarter: 2007Q1

REPORT INFORMATION
  Report Type: 
  Country: None (occurrence: None)
  Receive Date: 20070329
  Receipt Date: 20070316
  Transmission Date: 20070707
  Serious: Yes (Hospitalization)
  Sender: FDA-Public Use
  Company Number: US-ELI_LILLY_AND_COMPANY-US200703002595

PATIENT
  Age: 63 Year
  Sex: Female

DRUGS (2)
  1. FORTEO [Suspect]
     Indication: FRACTURE TREATMENT
     Dosage: UNK D/F, UNK
     Dates: start: 20070217
  2. FORTEO [Suspect]
     Dosage: UNK D/F, UNK

REACTIONS (7)
  - BRONCHITIS [None]
  - FATIGUE [None]
  - INSOMNIA [None]
  - MALAISE [None]
  - PNEUMONIA [None]
  - RASH ERYTHEMATOUS [None]
  - RASH PRURITIC [None]
